FAERS Safety Report 9199758 (Version 1)
Quarter: 2013Q1

REPORT INFORMATION
  Report Type: Spontaneous
  Country: US (occurrence: None)
  Receive Date: 20130326
  Receipt Date: 20130326
  Transmission Date: 20140127
  Serious: Yes (Hospitalization)
  Sender: FDA-Public Use
  Company Number: 2013US001148

PATIENT
  Age: 67 Year
  Sex: Male
  Weight: 86 kg

DRUGS (16)
  1. PONATINIB [Suspect]
     Indication: CHRONIC MYELOID LEUKAEMIA
     Route: 048
     Dates: start: 20110620
  2. LIPITOR (ATORVASTATIN CALCIUM) [Concomitant]
  3. IMDUR [Concomitant]
  4. POTASSIUM CHLORIDE [Concomitant]
  5. LOPRESSOR (METOPROLOL TARTRATE) [Concomitant]
  6. COZAAR [Concomitant]
  7. LASIX (FUROSEMIDE SODIUM) [Concomitant]
  8. PLAVIX [Concomitant]
  9. ZYLOPRIM [Concomitant]
  10. LUTEIN [Concomitant]
  11. ASPIRIN [Concomitant]
  12. AMBIEN [Concomitant]
  13. COLACE (DOCUSATE SODIUM) [Concomitant]
  14. NITROSTAT [Concomitant]
  15. NEURONTIN (GABAPENTIN) [Concomitant]
  16. COREG (CARVEDILOL) [Concomitant]

REACTIONS (17)
  - Tachycardia paroxysmal [None]
  - Chest discomfort [None]
  - Dyspnoea [None]
  - Dizziness [None]
  - Hyperhidrosis [None]
  - Nausea [None]
  - Presyncope [None]
  - Extrasystoles [None]
  - Flushing [None]
  - Ventricular extrasystoles [None]
  - Blood urea increased [None]
  - Brain natriuretic peptide increased [None]
  - Blood calcium decreased [None]
  - Red blood cell count decreased [None]
  - Haemoglobin decreased [None]
  - Haematocrit decreased [None]
  - Neutrophil percentage decreased [None]
